FAERS Safety Report 10985975 (Version 3)
Quarter: 2015Q2

REPORT INFORMATION
  Report Type: Report from Study
  Country: CA (occurrence: CA)
  Receive Date: 20150404
  Receipt Date: 20150513
  Transmission Date: 20150821
  Serious: Yes (Death, Hospitalization, Other)
  Sender: FDA-Public Use
  Company Number: PHHY2014CA121329

PATIENT
  Age: 79 Year
  Sex: Female

DRUGS (2)
  1. SANDOSTATIN [Suspect]
     Active Substance: OCTREOTIDE ACETATE
     Indication: COLON CANCER
     Dosage: 100 UG, TID
     Route: 058
     Dates: start: 20140814
  2. SANDOSTATIN LAR DEPOT [Suspect]
     Active Substance: OCTREOTIDE ACETATE
     Indication: COLON CANCER
     Dosage: 20 MG, QMO
     Route: 030
     Dates: start: 20140915, end: 20150416

REACTIONS (13)
  - Anaemia [Recovering/Resolving]
  - Haemoglobin decreased [Unknown]
  - Lymphoedema [Unknown]
  - Fall [Unknown]
  - Hypersomnia [Unknown]
  - Blood pressure diastolic decreased [Unknown]
  - Off label use [Unknown]
  - Blood pressure systolic increased [Unknown]
  - Fatigue [Unknown]
  - Asthenia [Unknown]
  - Swelling [Unknown]
  - Death [Fatal]
  - Contusion [Recovering/Resolving]

NARRATIVE: CASE EVENT DATE: 20140915
